FAERS Safety Report 24815138 (Version 1)
Quarter: 2025Q1

REPORT INFORMATION
  Report Type: Spontaneous
  Country: US (occurrence: None)
  Receive Date: 20250107
  Receipt Date: 20250107
  Transmission Date: 20250409
  Serious: Yes (Disabling)
  Sender: FDA-CTU
  Company Number: None

PATIENT
  Age: 79 Year
  Sex: Female
  Weight: 67.5 kg

DRUGS (24)
  1. EVENITY [Suspect]
     Active Substance: ROMOSOZUMAB-AQQG
     Indication: Osteopenia
     Route: 030
     Dates: start: 20231115, end: 20241230
  2. CARBIDOPA\LEVODOPA [Concomitant]
     Active Substance: CARBIDOPA\LEVODOPA
  3. duloxetind [Concomitant]
  4. METOPROLOL [Concomitant]
     Active Substance: METOPROLOL
  5. pantoprolol [Concomitant]
  6. ROSUVASTATIN [Concomitant]
     Active Substance: ROSUVASTATIN
  7. COENZYME Q10 [Concomitant]
     Active Substance: DIETARY SUPPLEMENT\UBIDECARENONE
  8. JARDIANCE [Concomitant]
     Active Substance: EMPAGLIFLOZIN
  9. PLAVIX [Concomitant]
     Active Substance: CLOPIDOGREL BISULFATE
  10. ROPINIROLE [Concomitant]
     Active Substance: ROPINIROLE
  11. epic [Concomitant]
  12. HUMALOG [Concomitant]
     Active Substance: INSULIN LISPRO
  13. Romeo [Concomitant]
  14. slomag [Concomitant]
  15. MELATONIN [Concomitant]
     Active Substance: MELATONIN
  16. C [Concomitant]
  17. VITAMIN D3 [Concomitant]
     Active Substance: CHOLECALCIFEROL
  18. B12 [Concomitant]
  19. FISH OIL [Concomitant]
     Active Substance: FISH OIL
  20. PYRIDOXINE HYDROCHLORIDE [Concomitant]
     Active Substance: PYRIDOXINE HYDROCHLORIDE
  21. HERBALS [Concomitant]
     Active Substance: HERBALS
  22. topical frankincense [Concomitant]
  23. helichrysum magnesium cream [Concomitant]
  24. TYLENOL [Concomitant]
     Active Substance: ACETAMINOPHEN

REACTIONS (5)
  - Arthralgia [None]
  - Pain in extremity [None]
  - Back pain [None]
  - Headache [None]
  - Pain in extremity [None]
